FAERS Safety Report 7422942-5 (Version None)
Quarter: 2011Q2

REPORT INFORMATION
  Report Type: 
  Country: None (occurrence: None)
  Receive Date: 20110411
  Receipt Date: 20110326
  Transmission Date: 20111010
  Serious: Yes (Other)
  Sender: FDA-Public Use
  Company Number: 2011P1004621

PATIENT
  Age: 33 Year
  Sex: Female
  Weight: 55.7924 kg

DRUGS (3)
  1. HYDROCORTISONE 1%-P CREAM [Suspect]
     Indication: PRURITUS
     Dosage: X1;TOP
     Route: 061
     Dates: start: 20110222, end: 20110222
  2. HYDROCORTISONE 1%-P CREAM [Suspect]
     Indication: SKIN LESION
     Dosage: X1;TOP
     Route: 061
     Dates: start: 20110222, end: 20110222
  3. PAXIL [Concomitant]

REACTIONS (5)
  - APPLICATION SITE PAIN [None]
  - SCAB [None]
  - CHEMICAL BURN OF SKIN [None]
  - APPLICATION SITE SWELLING [None]
  - APPLICATION SITE INFLAMMATION [None]
